FAERS Safety Report 5489229-1 (Version None)
Quarter: 2007Q4

REPORT INFORMATION
  Report Type: 
  Country: None (occurrence: None)
  Receive Date: 20071016
  Receipt Date: 20071010
  Transmission Date: 20080405
  Serious: No
  Sender: FDA-Public Use
  Company Number: 163-20785-07090445

PATIENT
  Age: 57 Year
  Sex: Female

DRUGS (2)
  1. THALOMID [Suspect]
     Indication: MULTIPLE MYELOMA
     Dosage: 200 MG, 4 IN 1 D, ORAL; 100 MG, 2 IN 1 D
     Route: 048
     Dates: start: 20040427, end: 20040501
  2. THALOMID [Suspect]
     Indication: MULTIPLE MYELOMA
     Dosage: 200 MG, 4 IN 1 D, ORAL; 100 MG, 2 IN 1 D
     Route: 048
     Dates: start: 20040601, end: 20051101

REACTIONS (2)
  - GINGIVAL DISORDER [None]
  - IMPAIRED HEALING [None]
